FAERS Safety Report 12271824 (Version 1)
Quarter: 2016Q2

REPORT INFORMATION
  Report Type: Spontaneous
  Country: HU (occurrence: HU)
  Receive Date: 20160415
  Receipt Date: 20160415
  Transmission Date: 20160815
  Serious: Yes (Hospitalization, Other)
  Sender: FDA-Public Use
  Company Number: HU-SA-2016SA074290

PATIENT
  Age: 56 Year
  Sex: Male

DRUGS (5)
  1. DOCETAXEL. [Suspect]
     Active Substance: DOCETAXEL
     Route: 042
     Dates: start: 20160215, end: 20160215
  2. BISOCARD [Concomitant]
     Active Substance: BISOPROLOL
     Dates: start: 20050312
  3. SIMVASTATIN. [Concomitant]
     Active Substance: SIMVASTATIN
     Dates: start: 20050312
  4. TRITACE [Concomitant]
     Active Substance: RAMIPRIL
     Dates: start: 20050312
  5. ASPIRIN. [Concomitant]
     Active Substance: ASPIRIN
     Dates: start: 20050312

REACTIONS (1)
  - Metastases to central nervous system [Recovering/Resolving]

NARRATIVE: CASE EVENT DATE: 20160305
